FAERS Safety Report 16598144 (Version 1)
Quarter: 2019Q3

REPORT INFORMATION
  Report Type: Spontaneous
  Country: GB (occurrence: GB)
  Receive Date: 20190719
  Receipt Date: 20190719
  Transmission Date: 20191004
  Serious: Yes (Hospitalization)
  Sender: FDA-Public Use
  Company Number: GB-ASTRAZENECA-2019SF01213

PATIENT
  Age: 39 Year
  Sex: Male

DRUGS (8)
  1. DAPAGLIFLOZIN. [Suspect]
     Active Substance: DAPAGLIFLOZIN
     Route: 048
  2. GLUCAGON. [Suspect]
     Active Substance: GLUCAGON
     Route: 042
  3. BENZODIAZEPINES [Suspect]
     Active Substance: BENZODIAZEPINE
     Route: 065
  4. ATENOLOL. [Suspect]
     Active Substance: ATENOLOL
     Route: 048
  5. GLUCAGON. [Suspect]
     Active Substance: GLUCAGON
     Route: 040
  6. COCODAMOL [Suspect]
     Active Substance: ACETAMINOPHEN\CODEINE PHOSPHATE
     Route: 048
  7. RAMIPRIL. [Suspect]
     Active Substance: RAMIPRIL
     Route: 048
  8. COCAINE [Suspect]
     Active Substance: COCAINE
     Route: 065

REACTIONS (4)
  - Intentional overdose [Recovered/Resolved]
  - Euglycaemic diabetic ketoacidosis [Recovered/Resolved]
  - Acute kidney injury [Recovered/Resolved]
  - Hypotension [Recovered/Resolved]
